FAERS Safety Report 5892993-0 (Version None)
Quarter: 2008Q3

REPORT INFORMATION
  Report Type: 
  Country: None (occurrence: None)
  Receive Date: 20080923
  Receipt Date: 20071008
  Transmission Date: 20090109
  Serious: Yes (Other)
  Sender: FDA-Public Use
  Company Number: US-ASTRAZENECA-2007UW14341

PATIENT
  Age: 11857 Day
  Sex: Female

DRUGS (2)
  1. SEROQUEL [Suspect]
     Indication: SCHIZOPHRENIA
     Route: 048
     Dates: start: 20031001, end: 20061001
  2. RISPERDAL [Suspect]
     Indication: SCHIZOPHRENIA
     Dates: start: 20071001

REACTIONS (1)
  - PANCREATITIS CHRONIC [None]
